FAERS Safety Report 14961399 (Version 6)
Quarter: 2018Q3

REPORT INFORMATION
  Report Type: Report from Study
  Country: AU (occurrence: AU)
  Receive Date: 20180601
  Receipt Date: 20180910
  Transmission Date: 20181010
  Serious: Yes (Disabling, Other)
  Sender: FDA-Public Use
  Company Number: PHHY2018AU016847

PATIENT
  Age: 46 Year
  Sex: Female

DRUGS (7)
  1. METHOTREXATE. [Suspect]
     Active Substance: METHOTREXATE
     Indication: PRODUCT USED FOR UNKNOWN INDICATION
     Route: 065
  2. ARAVA [Suspect]
     Active Substance: LEFLUNOMIDE
     Indication: PSORIATIC ARTHROPATHY
     Dosage: 20 MG, Q48H
     Route: 048
     Dates: start: 201409
  3. LYRICA [Suspect]
     Active Substance: PREGABALIN
     Indication: FIBROMYALGIA
     Dosage: 75 MG, QHS
     Route: 065
     Dates: start: 2015, end: 201804
  4. COSENTYX [Suspect]
     Active Substance: SECUKINUMAB
     Dosage: UNK
     Route: 065
  5. PRISTIQ EXTENDED?RELEASE [Concomitant]
     Active Substance: DESVENLAFAXINE SUCCINATE
     Indication: DEPRESSION
     Dosage: 100 MG, QD (EVERY MORNING)
     Route: 048
     Dates: start: 201409
  6. COSENTYX [Suspect]
     Active Substance: SECUKINUMAB
     Indication: PSORIATIC ARTHROPATHY
     Dosage: 2 DF (150 MG), QMO
     Route: 065
     Dates: start: 20171018
  7. ENDEP [Suspect]
     Active Substance: AMITRIPTYLINE HYDROCHLORIDE
     Indication: FIBROMYALGIA
     Dosage: 25 MG, QHS
     Route: 065
     Dates: start: 201804, end: 201805

REACTIONS (26)
  - Arthralgia [Not Recovered/Not Resolved]
  - Nasopharyngitis [Unknown]
  - Influenza [Unknown]
  - Injection site pain [Not Recovered/Not Resolved]
  - Musculoskeletal pain [Unknown]
  - Blood lactate dehydrogenase increased [Recovered/Resolved]
  - Back pain [Unknown]
  - Mental impairment [Not Recovered/Not Resolved]
  - Peripheral swelling [Unknown]
  - Disorientation [Unknown]
  - Hepatic enzyme increased [Recovering/Resolving]
  - Injection site reaction [Unknown]
  - Therapeutic response unexpected [Unknown]
  - Dizziness [Recovered/Resolved]
  - Hypoacusis [Not Recovered/Not Resolved]
  - Drug ineffective [Recovering/Resolving]
  - Psoriatic arthropathy [Recovered/Resolved]
  - Pain in extremity [Unknown]
  - Tremor [Not Recovered/Not Resolved]
  - Stress [Not Recovered/Not Resolved]
  - Fatigue [Unknown]
  - Insomnia [Unknown]
  - Pain [Not Recovered/Not Resolved]
  - Gait disturbance [Not Recovered/Not Resolved]
  - Dysstasia [Unknown]
  - Migraine [Not Recovered/Not Resolved]

NARRATIVE: CASE EVENT DATE: 2007
